FAERS Safety Report 7048668-8 (Version None)
Quarter: 2010Q4

REPORT INFORMATION
  Report Type: 
  Country: None (occurrence: None)
  Receive Date: 20101018
  Receipt Date: 20101011
  Transmission Date: 20110411
  Serious: Yes (Hospitalization)
  Sender: FDA-Public Use
  Company Number: IT-BAYER-201040840GPV

PATIENT
  Age: 39 Year
  Sex: Female

DRUGS (2)
  1. CIPROXIN [Suspect]
     Indication: URINARY TRACT INFECTION
     Dosage: UNIT DOSE: 500 MG
     Route: 048
     Dates: start: 20100908, end: 20100909
  2. TAVANIC [Suspect]
     Indication: URINARY TRACT INFECTION
     Dosage: UNIT DOSE: 500 MG
     Route: 048
     Dates: start: 20100906, end: 20100907

REACTIONS (4)
  - HYPERHIDROSIS [None]
  - NAUSEA [None]
  - RASH PAPULAR [None]
  - VERTIGO [None]
